FAERS Safety Report 9684900 (Version 1)
Quarter: 2013Q4

REPORT INFORMATION
  Report Type: Report from Study
  Country: US (occurrence: US)
  Receive Date: 20131113
  Receipt Date: 20131113
  Transmission Date: 20140711
  Serious: Yes (Other)
  Sender: FDA-Public Use
  Company Number: US-ROCHE-1300061

PATIENT
  Sex: Female

DRUGS (4)
  1. NUTROPIN [Suspect]
     Indication: BARTTER^S SYNDROME
     Route: 058
  2. INDOMETHACIN [Concomitant]
     Route: 048
  3. ACETAMINOPHEN [Concomitant]
     Route: 048
  4. POTASSIUM CHLORIDE [Concomitant]
     Route: 048

REACTIONS (2)
  - Blood potassium decreased [Unknown]
  - Drug dose omission [Unknown]
